FAERS Safety Report 7701082-1 (Version None)
Quarter: 2011Q3

REPORT INFORMATION
  Report Type: 
  Country: None (occurrence: None)
  Receive Date: 20110819
  Receipt Date: 20110819
  Transmission Date: 20111222
  Serious: No
  Sender: FDA-Public Use
  Company Number: None

PATIENT

DRUGS (1)
  1. CHILDREN'S IBUPROFEN [Suspect]
     Dosage: 100MG/5ML ORAL
     Route: 048
     Dates: start: 20110804, end: 20110805

REACTIONS (2)
  - PRODUCT CONTAMINATION [None]
  - LIQUID PRODUCT PHYSICAL ISSUE [None]
